FAERS Safety Report 18749024 (Version 1)
Quarter: 2021Q1

REPORT INFORMATION
  Report Type: Spontaneous
  Country: US (occurrence: US)
  Receive Date: 20210116
  Receipt Date: 20210116
  Transmission Date: 20210419
  Serious: No
  Sender: FDA-Public Use
  Company Number: US-GLAXOSMITHKLINE-US2021AMR007182

PATIENT
  Sex: Female

DRUGS (1)
  1. NUCALA [Suspect]
     Active Substance: MEPOLIZUMAB
     Indication: ASTHMA
     Dosage: 100 MG ONCE PER MONTH
     Route: 042
     Dates: end: 202007

REACTIONS (3)
  - Nasopharyngitis [Recovered/Resolved]
  - Atypical pneumonia [Recovered/Resolved]
  - Illness [Recovered/Resolved]
